FAERS Safety Report 11619015 (Version 3)
Quarter: 2015Q4

REPORT INFORMATION
  Report Type: Report from Study
  Country: BR (occurrence: BR)
  Receive Date: 20151012
  Receipt Date: 20151127
  Transmission Date: 20160304
  Serious: No
  Sender: FDA-Public Use
  Company Number: PHHY2015BR122177

PATIENT
  Age: 79 Year
  Sex: Female
  Weight: 35 kg

DRUGS (2)
  1. EXELON PATCH [Suspect]
     Active Substance: RIVASTIGMINE
     Dosage: PATCH 10 (CM2)
     Route: 062
  2. EXELON PATCH [Suspect]
     Active Substance: RIVASTIGMINE
     Indication: MEMORY IMPAIRMENT
     Dosage: PATCH 5 (CM2)
     Route: 062

REACTIONS (5)
  - Hyperhidrosis [Unknown]
  - Product adhesion issue [Unknown]
  - Asthenia [Unknown]
  - Drug ineffective [Unknown]
  - Pneumonia [Unknown]
